FAERS Safety Report 5100647-3 (Version None)
Quarter: 2006Q3

REPORT INFORMATION
  Report Type: 
  Country: None (occurrence: None)
  Receive Date: 20060731
  Receipt Date: 20050711
  Transmission Date: 20061208
  Serious: Yes (Disabling)
  Sender: FDA-Public Use
  Company Number: 215228

PATIENT
  Age: 68 Year
  Sex: Male

DRUGS (8)
  1. RITUXAN [Suspect]
     Indication: DRUG USE FOR UNKNOWN INDICATION
     Dosage: 375 MG/M2 , 1 WEEK,
     Dates: start: 20050311, end: 20050401
  2. ALLOPURINOL [Concomitant]
  3. INSULIN (INSULIN) [Concomitant]
  4. PIOGLITAZONE (PRIOGLITAZXONE HYDROCHLORIDE) [Concomitant]
  5. BENADRYL [Concomitant]
  6. BETAMETHASONE (BETAMETHASONE) [Concomitant]
  7. CLEMASTINE (CLEMASTINE) [Concomitant]
  8. ZYRTEC [Concomitant]

REACTIONS (1)
  - DERMATITIS [None]
